FAERS Safety Report 16773885 (Version 3)
Quarter: 2022Q1

REPORT INFORMATION
  Report Type: Spontaneous
  Country: NL (occurrence: NL)
  Receive Date: 20190904
  Receipt Date: 20220105
  Transmission Date: 20220423
  Serious: Yes (Other)
  Sender: FDA-Public Use
  Company Number: NL-AUROBINDO-AUR-APL-2019-057995

PATIENT
  Age: 55 Year
  Sex: Female
  Weight: 54 kg

DRUGS (8)
  1. BISOPROLOL FUMARATE [Suspect]
     Active Substance: BISOPROLOL FUMARATE
     Indication: Myocardial infarction
     Dosage: 2 MILLIGRAM, ONCE A DAY, 1 DD 2.5 MG
     Route: 065
     Dates: start: 2007
  2. HUMIRA [Suspect]
     Active Substance: ADALIMUMAB
     Indication: Rheumatoid arthritis
     Dosage: 40 MILLIGRAM, 2 WEEK, 40MG/2 WEKEN
     Route: 065
     Dates: start: 2006
  3. METHOTREXATE [Concomitant]
     Active Substance: METHOTREXATE
     Indication: Product used for unknown indication
     Dosage: 15 MILLIGRAM, EVERY WEEK (MTX 6 X 2.5 MG)
     Route: 065
     Dates: start: 2004
  4. OMEPRAZOLE [Concomitant]
     Active Substance: OMEPRAZOLE
     Indication: Product used for unknown indication
     Dosage: 20 MILLIGRAM, ONCE A DAY, 20 MG/DAG
     Route: 065
     Dates: start: 2004
  5. ACETAMINOPHEN\CODEINE PHOSPHATE [Concomitant]
     Active Substance: ACETAMINOPHEN\CODEINE PHOSPHATE
     Indication: Product used for unknown indication
     Dosage: 1 DOSAGE FORM, ONCE A DAY, 500/20
     Route: 065
     Dates: start: 2010
  6. FLUTICASONE PROPIONATE [Concomitant]
     Active Substance: FLUTICASONE PROPIONATE
     Indication: Product used for unknown indication
     Dosage: 1 DOSAGE FORM, DOSERING ONBEKEND
     Route: 065
     Dates: start: 2006
  7. SIMVASTATIN [Concomitant]
     Active Substance: SIMVASTATIN
     Indication: Product used for unknown indication
     Dosage: 40 MILLIGRAM, ONCE A DAY
     Route: 065
     Dates: start: 2007
  8. ASPIRIN CALCIUM [Suspect]
     Active Substance: ASPIRIN CALCIUM
     Indication: Product used for unknown indication
     Dosage: 80 MILLIGRAM
     Route: 065
     Dates: start: 2007

REACTIONS (8)
  - Retroperitoneal fibrosis [Recovering/Resolving]
  - Myocardial infarction [Unknown]
  - Cushing^s syndrome [Unknown]
  - Pain in extremity [Unknown]
  - Abdominal discomfort [Unknown]
  - Arthralgia [Unknown]
  - Intermittent claudication [Unknown]
  - Tendon sheath incision [Unknown]

NARRATIVE: CASE EVENT DATE: 20070101
